FAERS Safety Report 7536106-8 (Version None)
Quarter: 2011Q2

REPORT INFORMATION
  Report Type: 
  Country: None (occurrence: None)
  Receive Date: 20110609
  Receipt Date: 20110530
  Transmission Date: 20111010
  Serious: Yes (Other)
  Sender: FDA-Public Use
  Company Number: CA-BAYER-2011-046353

PATIENT
  Age: 46 Year
  Sex: Female
  Weight: 66 kg

DRUGS (1)
  1. MIRENA [Suspect]
     Dosage: UNK
     Dates: start: 20070101, end: 20110101

REACTIONS (6)
  - ASTHENIA [None]
  - ANXIETY [None]
  - IRRITABILITY [None]
  - ALOPECIA [None]
  - AFFECTIVE DISORDER [None]
  - FATIGUE [None]
